FAERS Safety Report 11247525 (Version 2)
Quarter: 2015Q3

REPORT INFORMATION
  Report Type: Report from Study
  Country: US (occurrence: US)
  Receive Date: 20150708
  Receipt Date: 20150917
  Transmission Date: 20151125
  Serious: Yes (Other)
  Sender: FDA-Public Use
  Company Number: US-MYLANLABS-2015M1021731

PATIENT
  Age: 37 Year
  Sex: Female

DRUGS (3)
  1. CONTRACEPTIVES [Concomitant]
     Active Substance: UNSPECIFIED INGREDIENT
     Indication: CONTRACEPTION
     Dosage: UNK
     Route: 065
  2. AMNESTEEM [Suspect]
     Active Substance: ISOTRETINOIN
     Dosage: 20 MG, BID
     Dates: start: 20140502, end: 20150609
  3. ABSORICA [Suspect]
     Active Substance: ISOTRETINOIN
     Dosage: 20 MG, BID
     Dates: start: 2014, end: 2014

REACTIONS (1)
  - Exposure during pregnancy [Not Recovered/Not Resolved]

NARRATIVE: CASE EVENT DATE: 20150529
